FAERS Safety Report 8857680 (Version 1)
Quarter: 2012Q4

REPORT INFORMATION
  Report Type: 
  Country: FR (occurrence: FR)
  Receive Date: 20121024
  Receipt Date: 20121024
  Transmission Date: 20130627
  Serious: Yes (Life-Threatening)
  Sender: FDA-Public Use
  Company Number: FR-PFIZER INC-2012259974

PATIENT
  Age: 67 Year
  Sex: Female

DRUGS (3)
  1. AROMASINE [Suspect]
     Indication: BREAST CANCER
     Dosage: UNK
     Route: 048
     Dates: start: 20120817
  2. AFINITOR [Suspect]
     Indication: BREAST CANCER
     Dosage: UNK
     Route: 048
     Dates: start: 20120817, end: 20120911
  3. AUGMENTIN [Concomitant]
     Dosage: UNK
     Dates: start: 20120918

REACTIONS (2)
  - Interstitial lung disease [Not Recovered/Not Resolved]
  - Respiratory distress [Not Recovered/Not Resolved]
